FAERS Safety Report 13883424 (Version 4)
Quarter: 2017Q3

REPORT INFORMATION
  Report Type: Report from Study
  Country: US (occurrence: US)
  Receive Date: 20170818
  Receipt Date: 20170915
  Transmission Date: 20171127
  Serious: Yes (Death, Hospitalization)
  Sender: FDA-Public Use
  Company Number: US-ACTELION-A-US2017-156637

PATIENT
  Age: 81 Year
  Sex: Female

DRUGS (13)
  1. PROZAC [Concomitant]
     Active Substance: FLUOXETINE HYDROCHLORIDE
  2. SENOKOT [Concomitant]
     Active Substance: SENNOSIDES
  3. LIPITOR [Concomitant]
     Active Substance: ATORVASTATIN CALCIUM
  4. LOSARTAN. [Concomitant]
     Active Substance: LOSARTAN
     Dosage: 25 UNK, QD
  5. NEUROTIN [Concomitant]
     Active Substance: GABAPENTIN
  6. PANTOPRAZOLE [Concomitant]
     Active Substance: PANTOPRAZOLE
  7. PLAVIX [Concomitant]
     Active Substance: CLOPIDOGREL BISULFATE
     Dosage: 75 MG, QD
  8. MULTIVITAMIN [Concomitant]
     Active Substance: VITAMINS
  9. ATORVASTATIN [Concomitant]
     Active Substance: ATORVASTATIN
     Dosage: 40 UNK, OD
  10. DILTIAZEM. [Concomitant]
     Active Substance: DILTIAZEM
     Dosage: 180 UNK, UNK
  11. ASA [Concomitant]
     Active Substance: ASPIRIN
     Dosage: 81 UNK, UNK
  12. OPSUMIT [Suspect]
     Active Substance: MACITENTAN
     Indication: PULMONARY ARTERIAL HYPERTENSION
     Dosage: 10 MG, QD
     Route: 048
     Dates: start: 20170708, end: 20170905
  13. ASPIRIN. [Concomitant]
     Active Substance: ASPIRIN

REACTIONS (24)
  - Death [Fatal]
  - Thoracic cavity drainage [Unknown]
  - Dyspnoea [Unknown]
  - Nasal congestion [Not Recovered/Not Resolved]
  - Malaise [Unknown]
  - Blood pressure decreased [Recovered/Resolved]
  - Hyponatraemia [Unknown]
  - Blood sodium decreased [Unknown]
  - Mental status changes [Unknown]
  - Asthenia [Not Recovered/Not Resolved]
  - Vomiting [Recovered/Resolved]
  - Oxygen saturation decreased [Unknown]
  - Coronary artery disease [Unknown]
  - Disturbance in attention [Unknown]
  - Coronary arterial stent insertion [Unknown]
  - Cardiac failure congestive [Recovering/Resolving]
  - Pneumonia [Unknown]
  - Hypertension [Not Recovered/Not Resolved]
  - Anaemia [Not Recovered/Not Resolved]
  - Confusional state [Unknown]
  - Hypotension [Recovered/Resolved]
  - Fall [Unknown]
  - Pleural effusion [Unknown]
  - Acute respiratory failure [Unknown]

NARRATIVE: CASE EVENT DATE: 201707
